FAERS Safety Report 9127885 (Version 7)
Quarter: 2014Q3

REPORT INFORMATION
  Report Type: Spontaneous
  Country: US (occurrence: US)
  Receive Date: 20130122
  Receipt Date: 20140919
  Transmission Date: 20150326
  Serious: Yes (Hospitalization, Other)
  Sender: FDA-Public Use
  Company Number: US-009507513-1301USA010157

PATIENT
  Sex: Female

DRUGS (4)
  1. FOSAMAX [Suspect]
     Active Substance: ALENDRONATE SODIUM
     Dosage: 70 MG, QW
     Route: 048
     Dates: end: 2011
  2. ALENDRONATE SODIUM. [Suspect]
     Active Substance: ALENDRONATE SODIUM
  3. FOSAMAX [Suspect]
     Active Substance: ALENDRONATE SODIUM
     Indication: OSTEOPOROSIS
     Dosage: 10 MG, QD
     Route: 048
     Dates: start: 19971014
  4. CALCIUM (UNSPECIFIED) [Concomitant]
     Active Substance: CALCIUM
     Dosage: 1500 MG, QD

REACTIONS (48)
  - Renal failure chronic [Not Recovered/Not Resolved]
  - Haemorrhagic anaemia [Unknown]
  - Actinic keratosis [Unknown]
  - Angle closure glaucoma [Unknown]
  - Cystoid macular oedema [Unknown]
  - Constipation [Unknown]
  - Sinusitis [Unknown]
  - Nasal congestion [Unknown]
  - Hyperlipidaemia [Unknown]
  - Gastrooesophageal reflux disease [Unknown]
  - Intramedullary rod insertion [Unknown]
  - Intramedullary rod insertion [Unknown]
  - Low turnover osteopathy [Unknown]
  - Anxiety [Not Recovered/Not Resolved]
  - Fracture nonunion [Unknown]
  - Kyphoscoliosis [Unknown]
  - Seborrhoeic keratosis [Unknown]
  - Insomnia [Unknown]
  - Vitreous detachment [Unknown]
  - Macular fibrosis [Unknown]
  - Hyperparathyroidism [Unknown]
  - Bursitis [Unknown]
  - Haemorrhagic anaemia [Unknown]
  - Osteoarthritis [Unknown]
  - Fall [Unknown]
  - Intraocular lens implant [Unknown]
  - Cataract nuclear [Unknown]
  - Cholecystectomy [Unknown]
  - Fracture delayed union [Unknown]
  - Spinal column stenosis [Unknown]
  - Bacterial disease carrier [Unknown]
  - Sciatica [Unknown]
  - Metatarsalgia [Unknown]
  - Slow response to stimuli [Unknown]
  - Essential hypertension [Unknown]
  - Spinal osteoarthritis [Unknown]
  - Dry eye [Unknown]
  - Large intestine perforation [Unknown]
  - Atypical femur fracture [Recovering/Resolving]
  - Weight decreased [Unknown]
  - Spinal osteoarthritis [Unknown]
  - Vitamin D deficiency [Unknown]
  - Iron deficiency [Unknown]
  - Femur fracture [Recovering/Resolving]
  - Back pain [Not Recovered/Not Resolved]
  - Seborrhoeic keratosis [Unknown]
  - Adrenal disorder [Unknown]
  - Vertigo [Unknown]

NARRATIVE: CASE EVENT DATE: 19991202
